FAERS Safety Report 16480585 (Version 3)
Quarter: 2019Q3

REPORT INFORMATION
  Report Type: Report from Study
  Country: US (occurrence: US)
  Receive Date: 20190626
  Receipt Date: 20190813
  Transmission Date: 20191004
  Serious: Yes (Other)
  Sender: FDA-Public Use
  Company Number: PHEH2019US026671

PATIENT
  Sex: Male

DRUGS (1)
  1. GILENYA [Suspect]
     Active Substance: FINGOLIMOD HYDROCHLORIDE
     Indication: RELAPSING-REMITTING MULTIPLE SCLEROSIS
     Dosage: 0.5 MG, QD
     Route: 048
     Dates: start: 20171103

REACTIONS (6)
  - Multiple sclerosis [Unknown]
  - Hypoaesthesia [Unknown]
  - Asthenia [Unknown]
  - Motor dysfunction [Unknown]
  - Drug ineffective [Unknown]
  - Back pain [Unknown]
